FAERS Safety Report 13737656 (Version 2)
Quarter: 2018Q2

REPORT INFORMATION
  Report Type: Report from Study
  Country: US (occurrence: US)
  Receive Date: 20170710
  Receipt Date: 20180627
  Transmission Date: 20180711
  Serious: No
  Sender: FDA-Public Use
  Company Number: US-SAOL THERAPEUTICS-2016SAO00305

PATIENT
  Age: 61 Year
  Sex: Female
  Weight: 80.73 kg

DRUGS (11)
  1. BUPIVACAINE. [Suspect]
     Active Substance: BUPIVACAINE
     Dosage: 14.731 MG, \DAY
     Route: 037
  2. SUFENTA [Suspect]
     Active Substance: SUFENTANIL CITRATE
     Dosage: 170.14 MG, \DAY
     Route: 037
     Dates: start: 20160718
  3. SUFENTANIL [Suspect]
     Active Substance: SUFENTANIL
     Dosage: 194.83 ?G, \DAY
     Route: 037
  4. COMPOUNDED BUPIVACAINE [Suspect]
     Active Substance: BUPIVACAINE
     Dosage: 4.003 3UNK, UNK
     Route: 037
     Dates: start: 20160718
  5. COMPOUNDED BACLOFEN [Suspect]
     Active Substance: BACLOFEN
     Dosage: 149.69 ?G, \DAY
     Route: 037
  6. PRIALT [Suspect]
     Active Substance: ZICONOTIDE ACETATE
     Dosage: 1.6038 ?G, \DAY
     Route: 037
  7. SUFENTA [Suspect]
     Active Substance: SUFENTANIL CITRATE
     Dosage: 169.98 ?G, \DAY
     Route: 037
     Dates: start: 20160711, end: 20160718
  8. LASIX [Concomitant]
     Active Substance: FUROSEMIDE
  9. COMPOUNDED BACLOFEN [Suspect]
     Active Substance: BACLOFEN
     Dosage: 149.98 ?G, \DAY
     Route: 037
     Dates: start: 20160711, end: 20160718
  10. COMPOUNDED BACLOFEN [Suspect]
     Active Substance: BACLOFEN
     Dosage: 150.12 ?G, \DAY
     Route: 037
     Dates: start: 20160718
  11. COMPOUNDED BUPIVACAINE [Suspect]
     Active Substance: BUPIVACAINE
     Dosage: 3.9995 MG, \DAY
     Route: 037
     Dates: start: 20160711, end: 20160718

REACTIONS (6)
  - Dyspnoea [Recovered/Resolved]
  - Off label use [Unknown]
  - Feeling abnormal [Recovered/Resolved]
  - Nausea [Recovered/Resolved]
  - Hypotension [Recovered/Resolved]
  - Muscular weakness [Recovered/Resolved]

NARRATIVE: CASE EVENT DATE: 20151020
